FAERS Safety Report 23196213 (Version 1)
Quarter: 2023Q4

REPORT INFORMATION
  Report Type: Spontaneous
  Country: US (occurrence: US)
  Receive Date: 20231117
  Receipt Date: 20231117
  Transmission Date: 20240110
  Serious: No
  Sender: FDA-Public Use
  Company Number: US-SA-SAC20231114000930

PATIENT
  Age: 33 Year
  Sex: Female

DRUGS (7)
  1. DUPIXENT [Suspect]
     Active Substance: DUPILUMAB
     Indication: Pain
     Dosage: 300 MG, QOW
     Route: 058
     Dates: start: 20201113
  2. IBUPROFEN [Concomitant]
     Active Substance: IBUPROFEN
  3. OPZELURA [Concomitant]
     Active Substance: RUXOLITINIB PHOSPHATE
  4. OSELTAMIVIR [Concomitant]
     Active Substance: OSELTAMIVIR
  5. PANTOPRAZOLE [Concomitant]
     Active Substance: PANTOPRAZOLE
  6. PROGESTERONE [Concomitant]
     Active Substance: PROGESTERONE
  7. SUMATRIPTAN [Concomitant]
     Active Substance: SUMATRIPTAN

REACTIONS (2)
  - Infection [Unknown]
  - Product use in unapproved indication [Unknown]

NARRATIVE: CASE EVENT DATE: 20201113
